FAERS Safety Report 10006273 (Version 2)
Quarter: 2014Q2

REPORT INFORMATION
  Report Type: Spontaneous
  Country: CA (occurrence: CA)
  Receive Date: 20140313
  Receipt Date: 20140430
  Transmission Date: 20141212
  Serious: Yes (Hospitalization)
  Sender: FDA-Public Use
  Company Number: CA-NOVOPROD-401985

PATIENT
  Age: 6 Year
  Sex: Female

DRUGS (1)
  1. NOVOLIN GE NPH PENFILL [Suspect]
     Indication: TYPE 1 DIABETES MELLITUS
     Dosage: UNK
     Route: 065

REACTIONS (5)
  - Influenza [Unknown]
  - Diet refusal [Unknown]
  - Blood glucose fluctuation [Unknown]
  - Product solubility abnormal [Unknown]
  - Product colour issue [Unknown]
